FAERS Safety Report 20313161 (Version 1)
Quarter: 2022Q1

REPORT INFORMATION
  Report Type: Spontaneous
  Country: US (occurrence: US)
  Receive Date: 20220110
  Receipt Date: 20220110
  Transmission Date: 20220423
  Serious: No
  Sender: FDA-Public Use
  Company Number: US-TEVA-2021-US-1992325

PATIENT
  Age: 35 Year
  Sex: Female

DRUGS (1)
  1. RIZATRIPTAN BENZOATE [Suspect]
     Active Substance: RIZATRIPTAN BENZOATE
     Indication: Migraine
     Route: 065
     Dates: start: 2020

REACTIONS (1)
  - Gluten sensitivity [Unknown]

NARRATIVE: CASE EVENT DATE: 20211201
